FAERS Safety Report 8852022 (Version 2)
Quarter: 2013Q1

REPORT INFORMATION
  Report Type: Report from Study
  Country: US (occurrence: US)
  Receive Date: 20121022
  Receipt Date: 20130328
  Transmission Date: 20140127
  Serious: Yes (Death, Hospitalization)
  Sender: FDA-Public Use
  Company Number: US-SANOFI-AVENTIS-2012SA074828

PATIENT
  Age: 66 Year
  Sex: Male
  Weight: 78.2 kg

DRUGS (9)
  1. DOCETAXEL [Suspect]
     Indication: BLADDER CANCER
     Route: 041
     Dates: start: 20120406, end: 20120406
  2. DOCETAXEL [Suspect]
     Indication: BLADDER CANCER
     Route: 041
     Dates: start: 20120427, end: 20120427
  3. INVESTIGATIONAL DRUG [Suspect]
     Indication: BLADDER CANCER
     Route: 041
     Dates: start: 20120406, end: 20120406
  4. INVESTIGATIONAL DRUG [Suspect]
     Indication: BLADDER CANCER
     Route: 041
     Dates: start: 20120427, end: 20120427
  5. COLACE [Concomitant]
     Dates: start: 20111104
  6. ENOXAPARIN SODIUM [Concomitant]
     Dates: start: 20110909
  7. ZOFRAN [Concomitant]
     Dates: start: 20110822
  8. COMPAZINE [Concomitant]
     Dates: start: 20120413
  9. PREDNISONE [Concomitant]
     Dates: start: 20120413

REACTIONS (4)
  - Hepatic fibrosis [Fatal]
  - Hepatic failure [Not Recovered/Not Resolved]
  - Dehydration [Not Recovered/Not Resolved]
  - Asthenia [Not Recovered/Not Resolved]
